FAERS Safety Report 9671055 (Version 1)
Quarter: 2013Q4

REPORT INFORMATION
  Report Type: Spontaneous
  Country: US (occurrence: None)
  Receive Date: 20131105
  Receipt Date: 20131105
  Transmission Date: 20140711
  Serious: Yes (Hospitalization)
  Sender: FDA-Public Use
  Company Number: None

PATIENT
  Age: 63 Year
  Sex: Male

DRUGS (2)
  1. TAFINLAR [Suspect]
     Route: 048
     Dates: start: 20130910
  2. MEKINIST [Suspect]
     Route: 048
     Dates: start: 20130910

REACTIONS (5)
  - Dehydration [None]
  - Vomiting [None]
  - Diarrhoea [None]
  - Blood pressure decreased [None]
  - Body temperature increased [None]
